FAERS Safety Report 8804812 (Version 2)
Quarter: 2012Q4

REPORT INFORMATION
  Report Type: 
  Country: US (occurrence: US)
  Receive Date: 20120924
  Receipt Date: 20121022
  Transmission Date: 20130627
  Serious: Yes (Other)
  Sender: FDA-Public Use
  Company Number: US-JNJFOC-20100801987

PATIENT
  Age: 71 Year
  Sex: Male

DRUGS (7)
  1. LEVAQUIN [Suspect]
     Indication: BACTERIAL INFECTION
     Route: 048
     Dates: start: 20090413, end: 20090424
  2. ANSAID [Concomitant]
     Indication: PRODUCT USED FOR UNKNOWN INDICATION
     Route: 048
     Dates: start: 20090424
  3. RONDEC DM [Concomitant]
     Indication: PRODUCT USED FOR UNKNOWN INDICATION
     Route: 048
     Dates: start: 20090413, end: 20090424
  4. ZOCOR [Concomitant]
     Indication: PRODUCT USED FOR UNKNOWN INDICATION
     Route: 048
     Dates: start: 20090216
  5. METFORMIN HCL [Concomitant]
     Indication: PRODUCT USED FOR UNKNOWN INDICATION
     Route: 048
  6. VASOTEC [Concomitant]
     Indication: PRODUCT USED FOR UNKNOWN INDICATION
     Route: 048
     Dates: start: 20090216
  7. TENORETIC [Concomitant]
     Indication: PRODUCT USED FOR UNKNOWN INDICATION
     Dates: start: 20090216

REACTIONS (3)
  - Tendon rupture [Recovering/Resolving]
  - Rotator cuff syndrome [Recovering/Resolving]
  - Rotator cuff syndrome [Recovering/Resolving]
